FAERS Safety Report 17218383 (Version 1)
Quarter: 2020Q1

REPORT INFORMATION
  Report Type: Spontaneous
  Country: US (occurrence: US)
  Receive Date: 20191230
  Receipt Date: 20191230
  Transmission Date: 20200409
  Serious: Yes (Other)
  Sender: FDA-Public Use
  Company Number: None

PATIENT
  Age: 35 Year
  Sex: Female
  Weight: 87.75 kg

DRUGS (1)
  1. HALLS CHERRY [Suspect]
     Active Substance: MENTHOL
     Indication: OROPHARYNGEAL PAIN
     Route: 048
     Dates: start: 20191229

REACTIONS (3)
  - Visual impairment [None]
  - Vision blurred [None]
  - Dizziness [None]

NARRATIVE: CASE EVENT DATE: 20191229
